FAERS Safety Report 6900272-5 (Version None)
Quarter: 2010Q3

REPORT INFORMATION
  Report Type: 
  Country: None (occurrence: None)
  Receive Date: 20100803
  Receipt Date: 20100723
  Transmission Date: 20110219
  Serious: Yes (Other)
  Sender: FDA-Public Use
  Company Number: JP-ROCHE-718194

PATIENT
  Sex: Female
  Weight: 45 kg

DRUGS (7)
  1. XELODA [Suspect]
     Indication: RECTAL CANCER METASTATIC
     Dosage: 2 WEEKS ADMINISTRATION FOLLOWED BY 1 WEEK REST
     Route: 048
     Dates: start: 20100525, end: 20100629
  2. ELPLAT [Concomitant]
     Route: 041
     Dates: start: 20100525, end: 20100614
  3. GASTER [Concomitant]
     Route: 048
  4. PYRIDOXAL CALCIUM PHOSPHATE [Concomitant]
     Dosage: REPORTED AS ADEROXAL
     Route: 048
  5. PREDNISOLONE [Concomitant]
     Route: 048
  6. SLOW-K [Concomitant]
     Route: 048
  7. MAGMITT [Concomitant]
     Route: 048

REACTIONS (2)
  - JAUNDICE [None]
  - LIVER DISORDER [None]
